FAERS Safety Report 7493064-2 (Version None)
Quarter: 2011Q2

REPORT INFORMATION
  Report Type: 
  Country: None (occurrence: None)
  Receive Date: 20110520
  Receipt Date: 20110516
  Transmission Date: 20111010
  Serious: No
  Sender: FDA-Public Use
  Company Number: US-PFIZER INC-2011104680

PATIENT
  Age: 75 Year
  Sex: Female

DRUGS (1)
  1. PREMPRO [Suspect]
     Indication: MENOPAUSE
     Dosage: 0.45 MG, 1X/DAY
     Route: 048

REACTIONS (3)
  - PERSONALITY CHANGE [None]
  - ABNORMAL BEHAVIOUR [None]
  - CONFUSIONAL STATE [None]
